FAERS Safety Report 7401082-5 (Version None)
Quarter: 2011Q2

REPORT INFORMATION
  Report Type: 
  Country: None (occurrence: None)
  Receive Date: 20110407
  Receipt Date: 20110311
  Transmission Date: 20111010
  Serious: No
  Sender: FDA-Public Use
  Company Number: US-B.I. PHARMACEUTICALS,INC./RIDGEFIELD-2011-BP-07931BP

PATIENT
  Age: 68 Year
  Sex: Male

DRUGS (5)
  1. COREG [Concomitant]
     Indication: HYPERTENSION
     Dosage: 80 MG
     Route: 048
  2. NIASPAN [Concomitant]
     Route: 048
  3. TAGAMET [Concomitant]
     Route: 048
  4. PRADAXA [Suspect]
     Indication: ATRIAL FIBRILLATION
     Dosage: 300 MG
     Route: 048
     Dates: start: 20110201
  5. ACIPHEX [Concomitant]
     Indication: DYSPEPSIA
     Route: 048

REACTIONS (2)
  - EYE PRURITUS [None]
  - GASTRITIS [None]
